FAERS Safety Report 7732544-9 (Version None)
Quarter: 2011Q3

REPORT INFORMATION
  Report Type: 
  Country: None (occurrence: None)
  Receive Date: 20110906
  Receipt Date: 20110825
  Transmission Date: 20111222
  Serious: Yes (Hospitalization, Other)
  Sender: FDA-Public Use
  Company Number: US-ASTRAZENECA-2010SE57858

PATIENT
  Age: 64 Year
  Sex: Male

DRUGS (3)
  1. NEXIUM [Suspect]
     Route: 048
  2. PRILOSEC [Interacting]
     Route: 048
  3. OTHER MEDICATIONS [Interacting]
     Route: 065

REACTIONS (13)
  - EYE INFECTION [None]
  - MALAISE [None]
  - HYPERSENSITIVITY [None]
  - DRUG DOSE OMISSION [None]
  - DRUG INTERACTION [None]
  - VOCAL CORD DISORDER [None]
  - EYE DISCHARGE [None]
  - EYELID FUNCTION DISORDER [None]
  - VISION BLURRED [None]
  - DRUG INEFFECTIVE [None]
  - NASOPHARYNGITIS [None]
  - PNEUMONIA [None]
  - LUNG NEOPLASM [None]
